FAERS Safety Report 10766681 (Version 1)
Quarter: 2015Q1

REPORT INFORMATION
  Report Type: Spontaneous
  Country: ES (occurrence: ES)
  Receive Date: 20150205
  Receipt Date: 20150205
  Transmission Date: 20150721
  Serious: Yes (Other)
  Sender: FDA-Public Use
  Company Number: ES-AMGEN-ESPSP2015008923

PATIENT
  Age: 93 Year
  Sex: Female
  Weight: 60 kg

DRUGS (10)
  1. MIANSERIN [Concomitant]
     Active Substance: MIANSERIN
     Dosage: 30 MG, UNK
  2. FUROSEMIDE. [Concomitant]
     Active Substance: FUROSEMIDE
     Dosage: 40 MG, UNK
  3. WAL PROFEN COLD AND SINUS [Concomitant]
     Active Substance: IBUPROFEN\PSEUDOEPHEDRINE HYDROCHLORIDE
     Dosage: 2.5 G/880UI, UNK
  4. APOCARD [Concomitant]
     Active Substance: FLECAINIDE ACETATE
     Dosage: 100 MG, UNK
  5. PROLIA [Suspect]
     Active Substance: DENOSUMAB
     Indication: PRODUCT USED FOR UNKNOWN INDICATION
     Dosage: 60 MG, UNK
     Route: 065
     Dates: start: 20140926
  6. BISOPROLOL [Concomitant]
     Active Substance: BISOPROLOL
     Dosage: 2.5 MG, UNK
  7. FENTANYL. [Concomitant]
     Active Substance: FENTANYL
     Dosage: 25
  8. IRON [Concomitant]
     Active Substance: IRON
     Dosage: UNK
  9. ENSURE PLUS ADVANCE [Concomitant]
     Dosage: UNK
  10. EUTIROX [Concomitant]
     Active Substance: LEVOTHYROXINE SODIUM
     Dosage: 50 MUG, UNK

REACTIONS (1)
  - Respiratory tract infection [Unknown]

NARRATIVE: CASE EVENT DATE: 2014
